FAERS Safety Report 9220464 (Version 2)
Quarter: 2013Q2

REPORT INFORMATION
  Report Type: Report from Study
  Country: DE (occurrence: DE)
  Receive Date: 20130409
  Receipt Date: 20130506
  Transmission Date: 20140414
  Serious: Yes (Death)
  Sender: FDA-Public Use
  Company Number: DE-ROCHE-1208974

PATIENT
  Sex: 0

DRUGS (2)
  1. ALTEPLASE [Suspect]
     Indication: INTRAVENTRICULAR HAEMORRHAGE
     Dosage: EVERY 12 HOURS WITH MAXIMUM CUMULATIVE DOSE OF 20 MG
     Route: 065
  2. ALTEPLASE [Suspect]
     Dosage: EVERY 8 HOURS WITH A MAXIMUM CUMULATIVE DOSE OF 12 MG
     Route: 042

REACTIONS (1)
  - Pulmonary embolism [Fatal]
